FAERS Safety Report 6061292-9 (Version None)
Quarter: 2009Q1

REPORT INFORMATION
  Report Type: 
  Country: None (occurrence: None)
  Receive Date: 20090202
  Receipt Date: 20090121
  Transmission Date: 20090719
  Serious: Yes (Hospitalization)
  Sender: FDA-Public Use
  Company Number: US-MERCK-0811USA00933

PATIENT
  Age: 68 Year
  Sex: Male
  Weight: 100 kg

DRUGS (7)
  1. JANUVIA [Suspect]
     Indication: TYPE 2 DIABETES MELLITUS
     Route: 048
     Dates: start: 20081002, end: 20081103
  2. DICLOFENAC [Concomitant]
     Route: 048
     Dates: end: 20081015
  3. HYDROCHLOROTHIAZIDE AND LISINOPRIL [Concomitant]
     Indication: HYPERTENSION
     Route: 048
     Dates: end: 20081015
  4. PRAVASTATIN SODIUM [Concomitant]
     Indication: BLOOD CHOLESTEROL
     Route: 048
     Dates: end: 20081015
  5. INSULIN GLARGINE [Concomitant]
     Indication: TYPE 2 DIABETES MELLITUS
     Route: 058
  6. HUMALOG [Concomitant]
     Indication: TYPE 2 DIABETES MELLITUS
     Route: 058
  7. ACTOS [Concomitant]
     Route: 065

REACTIONS (15)
  - ATELECTASIS [None]
  - BRONCHOPNEUMONIA [None]
  - CREPITATIONS [None]
  - HEPATIC CYST [None]
  - HEPATITIS [None]
  - HEPATITIS CHOLESTATIC [None]
  - LICHEN PLANUS [None]
  - LUNG NEOPLASM [None]
  - NEPHRITIS [None]
  - PLEURAL EFFUSION [None]
  - PNEUMONIA ASPIRATION [None]
  - PNEUMONITIS [None]
  - RASH [None]
  - RENAL INFARCT [None]
  - RESPIRATORY DISORDER [None]
